FAERS Safety Report 5734920-2 (Version None)
Quarter: 2008Q2

REPORT INFORMATION
  Report Type: 
  Country: None (occurrence: None)
  Receive Date: 20080512
  Receipt Date: 20080512
  Transmission Date: 20081010
  Serious: Yes (Life-Threatening, Hospitalization, Disabling, Other)
  Sender: FDA-Public Use
  Company Number: None

PATIENT
  Sex: Female
  Weight: 104.3273 kg

DRUGS (1)
  1. HEPARIN [Suspect]
     Indication: CAESAREAN SECTION
     Dates: start: 20071024, end: 20071024

REACTIONS (21)
  - ABDOMINAL PAIN [None]
  - BLOOD PRESSURE DECREASED [None]
  - COMA [None]
  - DEPRESSION [None]
  - DISTURBANCE IN ATTENTION [None]
  - DIZZINESS [None]
  - ECHOCARDIOGRAM ABNORMAL [None]
  - FEAR [None]
  - GENERALISED OEDEMA [None]
  - HERNIA PAIN [None]
  - HYPERHIDROSIS [None]
  - HYPERSENSITIVITY [None]
  - IMPAIRED HEALING [None]
  - INCISIONAL DRAINAGE [None]
  - INCISIONAL HERNIA [None]
  - MALAISE [None]
  - MEMORY IMPAIRMENT [None]
  - NAUSEA [None]
  - PARAESTHESIA [None]
  - PULMONARY EMBOLISM [None]
  - VERTIGO [None]
